FAERS Safety Report 5833055-8 (Version None)
Quarter: 2008Q3

REPORT INFORMATION
  Report Type: 
  Country: None (occurrence: None)
  Receive Date: 20080805
  Receipt Date: 20080715
  Transmission Date: 20090109
  Serious: Yes (Other)
  Sender: FDA-Public Use
  Company Number: JP-ASTRAZENECA-2008AP01852

PATIENT
  Age: 50 Year
  Sex: Female

DRUGS (2)
  1. SPLENDIL [Suspect]
     Indication: HYPERTENSION
     Dosage: DOSE UNKNOWN
     Route: 048
  2. GABAPENTIN [Suspect]
     Indication: EPILEPSY
     Dosage: DOSE UNKNOWN
     Route: 048

REACTIONS (1)
  - RHABDOMYOLYSIS [None]
